FAERS Safety Report 19572236 (Version 2)
Quarter: 2021Q4

REPORT INFORMATION
  Report Type: Report from Study
  Country: US (occurrence: US)
  Receive Date: 20210716
  Receipt Date: 20211004
  Transmission Date: 20220303
  Serious: No
  Sender: FDA-Public Use
  Company Number: NVSC2021US155294

PATIENT
  Sex: Male

DRUGS (1)
  1. ZOLGENSMA [Suspect]
     Active Substance: ONASEMNOGENE ABEPARVOVEC-XIOI
     Indication: Severe myoclonic epilepsy of infancy
     Dosage: UNK (ONE SINGLE DOSE)
     Route: 042
     Dates: start: 20210630, end: 20210630

REACTIONS (1)
  - Platelet count decreased [Unknown]
